FAERS Safety Report 4471223-0 (Version None)
Quarter: 2004Q4

REPORT INFORMATION
  Report Type: 
  Country: None (occurrence: None)
  Receive Date: 20041011
  Receipt Date: 20041001
  Transmission Date: 20050328
  Serious: Yes (Hospitalization)
  Sender: FDA-Public Use
  Company Number: BR-MERCK-0410BRA00062

PATIENT
  Age: 50 Year
  Sex: Male

DRUGS (1)
  1. ROFECOXIB [Suspect]
     Indication: SURGERY
     Route: 048
     Dates: start: 20040924, end: 20040926

REACTIONS (2)
  - ANGINA PECTORIS [None]
  - HYPERTENSION [None]
